FAERS Safety Report 17728060 (Version 2)
Quarter: 2020Q2

REPORT INFORMATION
  Report Type: Report from Study
  Country: BR (occurrence: BR)
  Receive Date: 20200430
  Receipt Date: 20200518
  Transmission Date: 20200714
  Serious: Yes (Other)
  Sender: FDA-Public Use
  Company Number: BR-009507513-2004BRA007717

PATIENT
  Sex: Male
  Weight: 70 kg

DRUGS (7)
  1. FUROSEMIDE. [Suspect]
     Active Substance: FUROSEMIDE
     Indication: FLUID RETENTION
     Dosage: 3 TABLETS A DAY
     Route: 048
  2. TRAYENTA DUO [Suspect]
     Active Substance: LINAGLIPTIN\METFORMIN HYDROCHLORIDE
     Indication: DIABETES MELLITUS
     Dosage: 2.5MG/500MG, 1 TABLET IN THE MORNING
     Route: 048
     Dates: start: 20200421
  3. JANUMET [Suspect]
     Active Substance: METFORMIN HYDROCHLORIDE\SITAGLIPTIN PHOSPHATE
     Indication: TYPE 2 DIABETES MELLITUS
     Dosage: UNK
     Route: 048
     Dates: start: 2015
  4. GLICLAZIDE [Suspect]
     Active Substance: GLICLAZIDE
     Indication: DIABETES MELLITUS
     Dosage: 2 TABLETS PER DAY
     Route: 048
  5. LOSARTAN POTASSIUM. [Suspect]
     Active Substance: LOSARTAN POTASSIUM
     Indication: HYPERTENSION
     Dosage: 1 TABLET A DAY
     Route: 048
  6. APIXABAN [Suspect]
     Active Substance: APIXABAN
     Indication: RENAL DISORDER
     Dosage: 1 TABLET PER DAY
     Route: 048
  7. APIXABAN [Suspect]
     Active Substance: APIXABAN
     Indication: LIVER DISORDER

REACTIONS (6)
  - Blood potassium decreased [Unknown]
  - Arrhythmia [Unknown]
  - Drug hypersensitivity [Unknown]
  - Peripheral swelling [Unknown]
  - Blood cholesterol abnormal [Unknown]
  - Swelling face [Unknown]
